FAERS Safety Report 6808925-4 (Version None)
Quarter: 2010Q2

REPORT INFORMATION
  Report Type: 
  Country: None (occurrence: None)
  Receive Date: 20100630
  Receipt Date: 20091113
  Transmission Date: 20101027
  Serious: Yes (Other)
  Sender: FDA-Public Use
  Company Number: US-PFIZER INC-2009276423

PATIENT

DRUGS (2)
  1. ZYVOX [Suspect]
  2. HEPARIN SODIUM [Suspect]

REACTIONS (1)
  - THROMBOCYTOPENIA [None]
